FAERS Safety Report 6505845-X (Version None)
Quarter: 2009Q4

REPORT INFORMATION
  Report Type: 
  Country: None (occurrence: None)
  Receive Date: 20091218
  Receipt Date: 20091207
  Transmission Date: 20100525
  Serious: Yes (Hospitalization)
  Sender: FDA-Public Use
  Company Number: US-ELI_LILLY_AND_COMPANY-US200912001777

PATIENT
  Age: 63 Year
  Sex: Female

DRUGS (8)
  1. ZYPREXA [Suspect]
     Indication: BIPOLAR DISORDER
     Dosage: 20 MG, EACH EVENING
     Dates: start: 19970101
  2. ZYPREXA [Suspect]
     Dosage: 30 MG, UNK
  3. LEVOXYL [Concomitant]
  4. LASIX [Concomitant]
  5. ASPIRIN [Concomitant]
     Dosage: 81 MG/KG, DAILY (1/D)
  6. HYDROCHLOROTHIAZIDE [Concomitant]
  7. POTASSIUM [Concomitant]
  8. DEPAKOTE [Concomitant]
     Dosage: 500 MG, 3/D

REACTIONS (7)
  - BELLIGERENCE [None]
  - DRUG INEFFECTIVE [None]
  - EUPHORIC MOOD [None]
  - INSOMNIA [None]
  - MANIA [None]
  - OVERDOSE [None]
  - WEIGHT INCREASED [None]
